FAERS Safety Report 24863548 (Version 1)
Quarter: 2025Q1

REPORT INFORMATION
  Report Type: Spontaneous
  Country: JP (occurrence: JP)
  Receive Date: 20250120
  Receipt Date: 20250120
  Transmission Date: 20250408
  Serious: Yes (Other)
  Sender: UCB
  Company Number: JP-UCBJ-CD202500498UCBPHAPROD

PATIENT

DRUGS (1)
  1. LEVETIRACETAM [Suspect]
     Active Substance: LEVETIRACETAM
     Indication: Product used for unknown indication
     Dosage: 250 MILLIGRAM, 2X/DAY (BID) (250MG AT 2 TABLETS IN 2 DIVIDED DOSES)
     Route: 048

REACTIONS (4)
  - Epilepsy [Unknown]
  - Surgery [Unknown]
  - Off label use [Unknown]
  - Prescribed underdose [Unknown]
